FAERS Safety Report 11133395 (Version 1)
Quarter: 2015Q2

REPORT INFORMATION
  Report Type: Report from Study
  Country: BR (occurrence: BR)
  Receive Date: 20150522
  Receipt Date: 20150522
  Transmission Date: 20150821
  Serious: Yes (Other)
  Sender: FDA-Public Use
  Company Number: ALCN2015BR003270

PATIENT
  Sex: Female
  Weight: 60 kg

DRUGS (1)
  1. DUOTRAV [BAC] [Suspect]
     Active Substance: TIMOLOL\TRAVOPROST
     Indication: OCULAR HYPERTENSION
     Dosage: 1 GTT, QHS
     Route: 047

REACTIONS (7)
  - Gait disturbance [Not Recovered/Not Resolved]
  - Eye pain [Not Recovered/Not Resolved]
  - Weight decreased [Not Recovered/Not Resolved]
  - Eye inflammation [Not Recovered/Not Resolved]
  - Malaise [Not Recovered/Not Resolved]
  - Eye discharge [Not Recovered/Not Resolved]
  - Dementia Alzheimer^s type [Not Recovered/Not Resolved]
